FAERS Safety Report 10539692 (Version 4)
Quarter: 2014Q4

REPORT INFORMATION
  Report Type: Report from Study
  Country: US (occurrence: US)
  Receive Date: 20141024
  Receipt Date: 20141201
  Transmission Date: 20150529
  Serious: Yes (Death, Hospitalization, Other)
  Sender: FDA-Public Use
  Company Number: US-AMGEN-USASL2014081380

PATIENT
  Age: 77 Year
  Sex: Female
  Weight: 42 kg

DRUGS (2)
  1. PROLIA [Suspect]
     Active Substance: DENOSUMAB
     Indication: VITAMIN D DEFICIENCY
  2. PROLIA [Suspect]
     Active Substance: DENOSUMAB
     Indication: OSTEOPOROSIS POSTMENOPAUSAL
     Dosage: UNK
     Route: 058
     Dates: start: 20130514

REACTIONS (12)
  - Pleural effusion [Unknown]
  - Bone density decreased [Unknown]
  - Atelectasis [Unknown]
  - Acute respiratory failure [Unknown]
  - Spinal osteoarthritis [Unknown]
  - Spinal fracture [Unknown]
  - Compression fracture [Unknown]
  - Cardiac failure congestive [Fatal]
  - Aortic arteriosclerosis [Unknown]
  - Fall [Unknown]
  - Rib fracture [Unknown]
  - Lung disorder [Unknown]

NARRATIVE: CASE EVENT DATE: 20140102
